FAERS Safety Report 8366711-0 (Version None)
Quarter: 2012Q2

REPORT INFORMATION
  Report Type: 
  Country: None (occurrence: None)
  Receive Date: 20120517
  Receipt Date: 20120509
  Transmission Date: 20120825
  Serious: Yes (Hospitalization, Other)
  Sender: FDA-Public Use
  Company Number: FR-PFIZER INC-2012117824

PATIENT
  Age: 76 Year
  Sex: Male

DRUGS (10)
  1. ASPIRIN [Concomitant]
     Dosage: UNK
  2. AMLODIPINE [Concomitant]
     Dosage: UNK
  3. CORDARONE [Suspect]
     Dosage: 200 MG, DAILY
     Route: 065
     Dates: end: 20110405
  4. VALSARTAN [Concomitant]
     Dosage: UNK
  5. GLUCOPHAGE [Concomitant]
     Dosage: UNK
  6. FUROSEMIDE [Concomitant]
     Dosage: UNK
  7. ATENOLOL [Concomitant]
     Dosage: UNK
     Dates: end: 20110405
  8. ANDROCUR [Concomitant]
     Dosage: UNK
  9. CRESTOR [Concomitant]
     Dosage: UNK
  10. PENTOXIFYLLINE [Concomitant]
     Dosage: UNK

REACTIONS (6)
  - TACHYPNOEA [None]
  - RENAL FAILURE ACUTE [None]
  - DIABETES MELLITUS [None]
  - HYPOTENSION [None]
  - DIARRHOEA [None]
  - BRADYCARDIA [None]
